FAERS Safety Report 5115299-6 (Version None)
Quarter: 2006Q3

REPORT INFORMATION
  Report Type: 
  Country: None (occurrence: None)
  Receive Date: 20060922
  Receipt Date: 20060906
  Transmission Date: 20061208
  Serious: Yes (Other)
  Sender: FDA-Public Use
  Company Number: 229945

PATIENT
  Age: 47 Year
  Sex: Female

DRUGS (2)
  1. HERCEPTIN [Suspect]
     Indication: BREAST CANCER METASTATIC
     Dosage: 240 MG, IV DRIP, 120 MG, 1/WEEK,
     Route: 041
     Dates: start: 20060510
  2. HERCEPTIN [Suspect]
     Indication: BREAST CANCER METASTATIC
     Dosage: 240 MG, IV DRIP, 120 MG, 1/WEEK,
     Route: 041
     Dates: start: 20060517

REACTIONS (16)
  - ANOREXIA [None]
  - ASTHMA [None]
  - BACK PAIN [None]
  - BLOOD ALBUMIN DECREASED [None]
  - CHILLS [None]
  - CONSTIPATION [None]
  - COUGH [None]
  - DERMATITIS CONTACT [None]
  - DIARRHOEA [None]
  - DYSGEUSIA [None]
  - HYPOAESTHESIA [None]
  - MALAISE [None]
  - NAUSEA [None]
  - PIGMENTATION DISORDER [None]
  - PYREXIA [None]
  - RASH [None]
